FAERS Safety Report 18516901 (Version 1)
Quarter: 2020Q4

REPORT INFORMATION
  Report Type: Spontaneous
  Country: US (occurrence: US)
  Receive Date: 20201118
  Receipt Date: 20201118
  Transmission Date: 20210114
  Serious: No
  Sender: FDA-Public Use
  Company Number: None

PATIENT
  Age: 77 Year
  Sex: Female
  Weight: 84.6 kg

DRUGS (10)
  1. MONTELUKAST [Concomitant]
     Active Substance: MONTELUKAST SODIUM
  2. PURITANS PRIDE BRAND ULTRA WOMAN 50+ [Concomitant]
  3. MULTI-VITAMIN [Concomitant]
     Active Substance: .ALPHA.-TOCOPHEROL ACETATE, DL-\ASCORBIC ACID\CYANOCOBALAMIN\FLUORIDE ION\FOLIC ACID\NIACIN\PYRIDOXINE\RIBOFLAVIN\THIAMINE\VITAMIN A\VITAMIN D
  4. HYDRALAZINE [Concomitant]
     Active Substance: HYDRALAZINE HYDROCHLORIDE
  5. PREDNISONE. [Concomitant]
     Active Substance: PREDNISONE
  6. VERAPAMIL [Suspect]
     Active Substance: VERAPAMIL HYDROCHLORIDE
     Indication: HYPERTENSION
     Dosage: ?          QUANTITY:1 CAPSULE(S);?
     Route: 048
     Dates: start: 20201026, end: 20201118
  7. ATENOLOL 100MG [Concomitant]
     Active Substance: ATENOLOL
  8. LOSARTAN. [Concomitant]
     Active Substance: LOSARTAN
  9. RESTASIS [Concomitant]
     Active Substance: CYCLOSPORINE
  10. GLUCOSAMINE CHONDROITIN MSM [Concomitant]

REACTIONS (8)
  - Anxiety [None]
  - Dry mouth [None]
  - Alopecia [None]
  - Gait disturbance [None]
  - Fatigue [None]
  - Dyspnoea [None]
  - Abnormal dreams [None]
  - Heart rate irregular [None]

NARRATIVE: CASE EVENT DATE: 20201118
